FAERS Safety Report 4806362-5 (Version None)
Quarter: 2005Q4

REPORT INFORMATION
  Report Type: 
  Country: None (occurrence: None)
  Receive Date: 20051021
  Receipt Date: 20050718
  Transmission Date: 20060501
  Serious: Yes (Hospitalization)
  Sender: FDA-Public Use
  Company Number: US-MERCK-0507USA02927

PATIENT
  Age: 82 Year
  Sex: Female
  Weight: 57 kg

DRUGS (12)
  1. VIOXX [Suspect]
     Indication: ARTHRALGIA
     Route: 048
     Dates: start: 20000906, end: 20040220
  2. VIOXX [Suspect]
     Indication: OSTEOARTHRITIS
     Route: 048
     Dates: start: 20000906, end: 20040220
  3. BEXTRA [Concomitant]
     Route: 065
     Dates: start: 20040201, end: 20050401
  4. NORVASC [Concomitant]
     Route: 065
  5. SYNTHROID [Concomitant]
     Route: 065
  6. MIACALCIN [Concomitant]
     Route: 065
  7. EVISTA [Concomitant]
     Route: 065
  8. CENTRUM SILVER [Concomitant]
     Route: 065
  9. AMBIEN [Concomitant]
     Route: 065
  10. ASPIRIN [Concomitant]
     Route: 065
  11. CALCIUM (UNSPECIFIED) AND VITAMIN D (UNSPECIFIED) [Concomitant]
     Route: 065
  12. VITAMIN D (UNSPECIFIED) [Concomitant]
     Route: 065

REACTIONS (5)
  - ATRIAL FIBRILLATION [None]
  - CEREBROVASCULAR ACCIDENT [None]
  - HIP FRACTURE [None]
  - NERVE COMPRESSION [None]
  - RENAL FAILURE CHRONIC [None]
